FAERS Safety Report 10524098 (Version 1)
Quarter: 2014Q4

REPORT INFORMATION
  Report Type: Report from Study
  Country: NL (occurrence: NL)
  Receive Date: 20141017
  Receipt Date: 20141017
  Transmission Date: 20150528
  Serious: Yes (Other)
  Sender: FDA-Public Use
  Company Number: NL-AMGEN-NLDSL2014079251

PATIENT
  Age: 94 Year
  Sex: Male

DRUGS (1)
  1. ARANESP [Suspect]
     Active Substance: DARBEPOETIN ALFA
     Indication: PRODUCT USED FOR UNKNOWN INDICATION
     Dosage: 40 MUG, Q2WK
     Route: 058

REACTIONS (5)
  - Oedema peripheral [Unknown]
  - Erythema [Unknown]
  - Fall [Unknown]
  - Joint swelling [Unknown]
  - Gastric disorder [Unknown]

NARRATIVE: CASE EVENT DATE: 20141006
